FAERS Safety Report 17751616 (Version 1)
Quarter: 2020Q2

REPORT INFORMATION
  Report Type: Spontaneous
  Country: CA (occurrence: CA)
  Receive Date: 20200506
  Receipt Date: 20200506
  Transmission Date: 20200714
  Serious: Yes (Other)
  Sender: FDA-Public Use
  Company Number: CA-SAMSUNG BIOEPIS-SB-2020-15257

PATIENT
  Age: 17 Year
  Sex: Female

DRUGS (2)
  1. ETANERCEPT [Suspect]
     Active Substance: ETANERCEPT
     Indication: ANKYLOSING SPONDYLITIS
     Route: 058
  2. ETANERCEPT [Suspect]
     Active Substance: ETANERCEPT
     Route: 058

REACTIONS (9)
  - Multiple sclerosis [Unknown]
  - Pain [Unknown]
  - Rash erythematous [Unknown]
  - Fatigue [Unknown]
  - Crohn^s disease [Unknown]
  - Influenza like illness [Unknown]
  - General physical health deterioration [Unknown]
  - Hypotension [Unknown]
  - Musculoskeletal stiffness [Unknown]
